FAERS Safety Report 21805522 (Version 1)
Quarter: 2023Q1

REPORT INFORMATION
  Report Type: Spontaneous
  Country: GB (occurrence: GB)
  Receive Date: 20230102
  Receipt Date: 20230102
  Transmission Date: 20230417
  Serious: Yes (Hospitalization, Disabling)
  Sender: FDA-Public Use
  Company Number: None

PATIENT

DRUGS (16)
  1. FUROSEMIDE [Suspect]
     Active Substance: FUROSEMIDE
     Indication: Product used for unknown indication
     Dosage: 40MG TABS BD (M,N)
  2. ACETYLCYSTEINE [Concomitant]
     Active Substance: ACETYLCYSTEINE
     Dosage: 600MG - 1 OM
  3. ALOGLIPTIN [Concomitant]
     Active Substance: ALOGLIPTIN
     Dosage: 6.25MG TABS - OM
  4. AMLODIPINE [Concomitant]
     Active Substance: AMLODIPINE BESYLATE
     Dosage: 5MG TABS - OM
  5. APIXABAN [Concomitant]
     Active Substance: APIXABAN
     Dosage: 5MG TABS - BD (M,N)
  6. BUPRENORPHINE [Concomitant]
     Active Substance: BUPRENORPHINE
     Dosage: 20MCG PATCH ONCE A WEEK ON FRIDAY
     Dates: start: 20221222
  7. COLCHICINE [Concomitant]
     Active Substance: COLCHICINE
     Dosage: 500MCG 1 OM FOR 2 WEEKS
  8. CYANOCOBALAMIN [Concomitant]
     Active Substance: CYANOCOBALAMIN
     Dosage: 50MCG TABS - OM
  9. DIGOXIN [Concomitant]
     Active Substance: DIGOXIN
     Dosage: 125MCG TABS - OM
     Dates: start: 20221222
  10. GABAPENTIN [Concomitant]
     Active Substance: GABAPENTIN
     Dosage: 300MG CAPS - 1 M, 1 MIDDAY, 2 EVE
  11. LEVOTHYROXINE [Concomitant]
     Active Substance: LEVOTHYROXINE
     Dosage: 25MCG TABS - OM
     Dates: start: 20221222
  12. NEBIVOLOL [Concomitant]
     Active Substance: NEBIVOLOL
     Dosage: 1.25MG TABS - OM
     Dates: start: 20221222
  13. OMEPRAZOLE [Concomitant]
     Active Substance: OMEPRAZOLE
     Dosage: 20MG G/R CAPSULES - BD (MN)
  14. OXYCODONE [Concomitant]
     Active Substance: OXYCODONE
     Dosage: 5MG/5ML - 2.5ML UP TO?QDS PRN
  15. PREDNISOLONE [Concomitant]
     Active Substance: PREDNISOLONE
     Dosage: REDUCING DOWN BY 1MG?EVERY 4 WEEKS FROM 10MG
  16. PREGABALIN [Concomitant]
     Active Substance: PREGABALIN
     Dosage: 75MG CAPSULES - 2 ON

REACTIONS (1)
  - Acute kidney injury [Recovered/Resolved]
